FAERS Safety Report 9649623 (Version 1)
Quarter: 2013Q4

REPORT INFORMATION
  Report Type: Spontaneous
  Country: IT (occurrence: None)
  Receive Date: 20131025
  Receipt Date: 20131025
  Transmission Date: 20140711
  Serious: Yes (Other)
  Sender: FDA-Public Use
  Company Number: 2013P1020261

PATIENT
  Age: 1 Day
  Sex: 0

DRUGS (1)
  1. ESCITALOPRAM [Suspect]
     Indication: PANIC DISORDER
     Route: 015

REACTIONS (2)
  - Foetal exposure during pregnancy [None]
  - Low birth weight baby [None]
